FAERS Safety Report 25521004 (Version 1)
Quarter: 2025Q3

REPORT INFORMATION
  Report Type: Spontaneous
  Country: US (occurrence: US)
  Receive Date: 20250705
  Receipt Date: 20250705
  Transmission Date: 20251020
  Serious: No
  Sender: SANOFI AVENTIS
  Company Number: US-SA-2025SA189183

PATIENT
  Age: 40 Year
  Sex: Female

DRUGS (9)
  1. DUPIXENT [Suspect]
     Active Substance: DUPILUMAB
     Indication: Dermatitis atopic
     Dosage: 300 MG, QOW
     Route: 058
     Dates: start: 20210702
  2. ACAMPROL [Concomitant]
  3. ALBUTEROL SULFATE [Concomitant]
     Active Substance: ALBUTEROL SULFATE
  4. ATOMOXETINE [Concomitant]
     Active Substance: ATOMOXETINE
  5. ATOMOXETINE [Concomitant]
     Active Substance: ATOMOXETINE
  6. BUPROPION [Concomitant]
     Active Substance: BUPROPION
  7. CLONIDINE [Concomitant]
     Active Substance: CLONIDINE
  8. DILTIAZEM [Concomitant]
     Active Substance: DILTIAZEM
  9. FLUOXETINE [Concomitant]
     Active Substance: FLUOXETINE HYDROCHLORIDE

REACTIONS (3)
  - Stomatitis [Unknown]
  - Oropharyngeal pain [Unknown]
  - Drug ineffective [Unknown]

NARRATIVE: CASE EVENT DATE: 20250701
